FAERS Safety Report 8334968-8 (Version None)
Quarter: 2012Q2

REPORT INFORMATION
  Report Type: 
  Country: None (occurrence: None)
  Receive Date: 20120503
  Receipt Date: 20120424
  Transmission Date: 20120825
  Serious: Yes (Other)
  Sender: FDA-Public Use
  Company Number: JP-JNJFOC-20120405958

PATIENT
  Sex: Female

DRUGS (5)
  1. NANADORA [Concomitant]
     Indication: RHINORRHOEA
     Dosage: PRESCRIBED FOR 14 TIMES
     Route: 045
     Dates: start: 20120402
  2. NANADORA [Concomitant]
     Indication: NASAL CONGESTION
     Dosage: PRESCRIBED FOR 14 TIMES
     Route: 045
     Dates: start: 20120402
  3. ZYRTEC [Suspect]
     Route: 048
  4. ZYRTEC [Suspect]
     Indication: RHINORRHOEA
     Route: 048
     Dates: start: 20120402, end: 20120402
  5. LORATADINE [Concomitant]
     Indication: RHINITIS ALLERGIC
     Dosage: PRESCRIBED FOR 14 TIMES
     Route: 065
     Dates: start: 20120305, end: 20120319

REACTIONS (1)
  - CONVULSION [None]
